FAERS Safety Report 10312043 (Version 1)
Quarter: 2014Q3

REPORT INFORMATION
  Report Type: Spontaneous
  Country: DE (occurrence: DE)
  Receive Date: 20140717
  Receipt Date: 20140717
  Transmission Date: 20150326
  Serious: Yes (Other)
  Sender: FDA-Public Use
  Company Number: PHHY2014DE087367

PATIENT
  Age: 20 Year
  Sex: Male

DRUGS (1)
  1. TEGRETAL [Suspect]
     Active Substance: CARBAMAZEPINE
     Dosage: 400 MG, UNK
     Route: 048

REACTIONS (1)
  - Convulsion [Unknown]
